FAERS Safety Report 25278576 (Version 1)
Quarter: 2025Q2

REPORT INFORMATION
  Report Type: Spontaneous
  Country: GB (occurrence: GB)
  Receive Date: 20250507
  Receipt Date: 20250507
  Transmission Date: 20250717
  Serious: Yes (Hospitalization, Other)
  Sender: PFIZER
  Company Number: None

PATIENT
  Age: 23 Year
  Sex: Male
  Weight: 61 kg

DRUGS (1)
  1. KETAMINE HYDROCHLORIDE [Suspect]
     Active Substance: KETAMINE HYDROCHLORIDE
     Indication: Substance use

REACTIONS (7)
  - Substance use [Recovered/Resolved]
  - Hyperkalaemia [Recovered/Resolved with Sequelae]
  - Hyponatraemia [Recovered/Resolved]
  - Liver function test abnormal [Recovered/Resolved with Sequelae]
  - Biliary tract disorder [Unknown]
  - Bladder disorder [Unknown]
  - Polyuria [Unknown]

NARRATIVE: CASE EVENT DATE: 20250405
